FAERS Safety Report 13292263 (Version 2)
Quarter: 2017Q1

REPORT INFORMATION
  Report Type: Spontaneous
  Country: JP (occurrence: JP)
  Receive Date: 20170303
  Receipt Date: 20170316
  Transmission Date: 20170428
  Serious: Yes (Other)
  Sender: FDA-Public Use
  Company Number: JP-AMGEN-JPNSP2017032843

PATIENT
  Age: 91 Year
  Sex: Female

DRUGS (14)
  1. DIART [Concomitant]
     Active Substance: AZOSEMIDE
     Dosage: UNK
     Route: 048
  2. NEXIUM [Concomitant]
     Active Substance: ESOMEPRAZOLE MAGNESIUM
     Dosage: UNK
     Route: 048
  3. DEPAS [Concomitant]
     Active Substance: ETIZOLAM
     Dosage: UNK
     Route: 048
  4. ALINAMIN F [Concomitant]
     Active Substance: FURSULTIAMINE HYDROCHLORIDE
     Dosage: UNK
     Route: 048
  5. LAC-B [Concomitant]
     Active Substance: BIFIDOBACTERIUM SPP.
     Dosage: UNK
     Route: 048
  6. ALFAROL [Concomitant]
     Active Substance: ALFACALCIDOL
     Dosage: UNK
     Route: 048
  7. CARNACULIN [Concomitant]
     Active Substance: KALLIDINOGENASE
     Dosage: UNK
     Route: 048
  8. OLMETEC [Concomitant]
     Active Substance: OLMESARTAN MEDOXOMIL
     Dosage: UNK
     Route: 048
  9. ALOSENN [Concomitant]
     Active Substance: SENNA LEAF
     Dosage: UNK
     Route: 048
  10. JUVELA [Concomitant]
     Active Substance: .ALPHA.-TOCOPHEROL\RETINOL
     Dosage: UNK
     Route: 048
  11. PRALIA [Suspect]
     Active Substance: DENOSUMAB
     Indication: OSTEOPOROSIS
     Dosage: 60 MG, UNK
     Route: 058
     Dates: start: 20151014, end: 20160921
  12. CALSLOT [Concomitant]
     Active Substance: MANIDIPINE HYDROCHLORIDE
     Dosage: UNK
     Route: 048
  13. LENDORMIN [Concomitant]
     Active Substance: BROTIZOLAM
     Dosage: UNK
     Route: 048
  14. VITAMEDIN [Concomitant]
     Active Substance: CYANOCOBALAMIN\PYRIDOXINE HYDROCHLORIDE\THIAMINE
     Dosage: UNK
     Route: 065

REACTIONS (1)
  - Osteonecrosis of jaw [Unknown]

NARRATIVE: CASE EVENT DATE: 201612
